FAERS Safety Report 20202194 (Version 5)
Quarter: 2022Q2

REPORT INFORMATION
  Report Type: Report from Study
  Country: US (occurrence: US)
  Receive Date: 20211217
  Receipt Date: 20220509
  Transmission Date: 20220721
  Serious: No
  Sender: FDA-Public Use
  Company Number: US-NOVARTISTESTPH-NVSC2021US289954

PATIENT
  Sex: Female
  Weight: 17.687 kg

DRUGS (6)
  1. TREPROSTINIL [Suspect]
     Active Substance: TREPROSTINIL
     Indication: Pulmonary arterial hypertension
     Dosage: CONT (22 NG/KG/MIN)
     Route: 058
     Dates: start: 20211208
  2. TREPROSTINIL [Suspect]
     Active Substance: TREPROSTINIL
     Dosage: 50 NG/KG/MIN, CONT
     Route: 058
     Dates: start: 20211208
  3. TREPROSTINIL [Suspect]
     Active Substance: TREPROSTINIL
     Dosage: 50 NG/KG/MIN CONT
     Route: 058
     Dates: start: 20211208
  4. TREPROSTINIL [Suspect]
     Active Substance: TREPROSTINIL
     Dosage: CONT (50 NG/KG/MIN, STRENGTH: 2.5 MG/ML)
     Route: 058
  5. TREPROSTINIL [Suspect]
     Active Substance: TREPROSTINIL
     Dosage: 50.1 NG/KG/MIN, CONT
     Route: 058
     Dates: start: 20211208
  6. SILDENAFIL CITRATE [Concomitant]
     Active Substance: SILDENAFIL CITRATE
     Indication: Product used for unknown indication
     Dosage: UNK
     Route: 065

REACTIONS (10)
  - Flushing [Unknown]
  - Frequent bowel movements [Unknown]
  - Hiccups [Unknown]
  - Dyspepsia [Unknown]
  - Device alarm issue [Unknown]
  - Incorrect dose administered by device [Unknown]
  - Injection site pain [Unknown]
  - Injection site erythema [Unknown]
  - Injection site pruritus [Unknown]
  - Injection site rash [Unknown]
